FAERS Safety Report 25214235 (Version 1)
Quarter: 2025Q2

REPORT INFORMATION
  Report Type: Spontaneous
  Country: FR (occurrence: FR)
  Receive Date: 20250418
  Receipt Date: 20250418
  Transmission Date: 20250717
  Serious: Yes (Hospitalization)
  Sender: PFIZER
  Company Number: None

PATIENT
  Age: 81 Year
  Sex: Male

DRUGS (9)
  1. PIPERACILLIN SODIUM\TAZOBACTAM SODIUM [Suspect]
     Active Substance: PIPERACILLIN SODIUM\TAZOBACTAM SODIUM
     Dosage: 1 DF, 1X/DAY
     Dates: start: 20250323, end: 20250323
  2. OLANZAPINE [Suspect]
     Active Substance: OLANZAPINE
     Indication: Behaviour disorder
     Dosage: 2.5 MG, 1X/DAY
     Route: 048
     Dates: start: 20250304, end: 20250318
  3. OLANZAPINE [Suspect]
     Active Substance: OLANZAPINE
     Dosage: 5 MG, 1X/DAY
     Route: 048
     Dates: start: 20250318, end: 20250324
  4. AMIKACIN [Suspect]
     Active Substance: AMIKACIN
     Dosage: 1 DF, 1X/DAY
     Dates: start: 20250323, end: 20250323
  5. MICONAZOLE [Concomitant]
     Active Substance: MICONAZOLE
     Dates: start: 20250318
  6. AMOXICILLIN [Concomitant]
     Active Substance: AMOXICILLIN
     Indication: Enterococcal infection
     Dates: start: 20250318
  7. SERTRALINE HYDROCHLORIDE [Concomitant]
     Active Substance: SERTRALINE HYDROCHLORIDE
     Dosage: 1 DF, 1X/DAY
     Dates: start: 20250322, end: 20250326
  8. ENOXAPARIN SODIUM [Concomitant]
     Active Substance: ENOXAPARIN SODIUM
     Dosage: 1 DF, 1X/DAY
     Dates: start: 20250317
  9. MIDAZOLAM [Concomitant]
     Active Substance: MIDAZOLAM
     Dosage: 1 DF, 1X/DAY
     Dates: start: 20250323, end: 20250323

REACTIONS (1)
  - Hepatic cytolysis [Recovering/Resolving]

NARRATIVE: CASE EVENT DATE: 20250324
